FAERS Safety Report 12683975 (Version 4)
Quarter: 2016Q4

REPORT INFORMATION
  Report Type: Spontaneous
  Country: US (occurrence: US)
  Receive Date: 20160825
  Receipt Date: 20161206
  Transmission Date: 20170207
  Serious: Yes (Hospitalization, Other)
  Sender: FDA-Public Use
  Company Number: US-PFIZER INC-2016398331

PATIENT
  Age: 78 Year
  Sex: Female
  Weight: 82 kg

DRUGS (27)
  1. PROMETHAZINE [Concomitant]
     Active Substance: PROMETHAZINE\PROMETHAZINE HYDROCHLORIDE
     Indication: NAUSEA
     Dosage: 2.5 MG, AS NEEDED
  2. TYLENOL [Concomitant]
     Active Substance: ACETAMINOPHEN
     Indication: PAIN
     Dosage: 650 MG, TWICE A DAY AS NEEDED (2 AM-2 PM)
  3. TYLENOL [Concomitant]
     Active Substance: ACETAMINOPHEN
     Dosage: 650 MG, AS NEEDED (ONCE)
     Route: 048
  4. AMOXICILLIN. [Concomitant]
     Active Substance: AMOXICILLIN
     Indication: KIDNEY INFECTION
     Dosage: UNK, AS NEEDED (500 EVERY 8 HOURS)
  5. ZADITOR [Concomitant]
     Active Substance: KETOTIFEN FUMARATE
     Dosage: 1 GTT, 2X/DAY
     Route: 047
  6. PHENERGAN [Concomitant]
     Active Substance: PROMETHAZINE HYDROCHLORIDE
     Indication: VOMITING
  7. PHENERGAN [Concomitant]
     Active Substance: PROMETHAZINE HYDROCHLORIDE
     Indication: NAUSEA
     Dosage: 25 MG, AS NEEDED (Q6H)
     Route: 048
  8. CITRATE [Concomitant]
     Active Substance: CITRIC ACID MONOHYDRATE
     Dosage: 1400 MG (EVERY PM)
  9. LOTENSIN [Concomitant]
     Active Substance: BENAZEPRIL HYDROCHLORIDE
     Dosage: 20 MG, DAILY
     Route: 048
  10. BENTYL [Concomitant]
     Active Substance: DICYCLOMINE HYDROCHLORIDE
     Dosage: 20 MG, DAILY
     Route: 048
  11. COLACE [Concomitant]
     Active Substance: DOCUSATE SODIUM
     Indication: CONSTIPATION
     Dosage: 100 MG, AS NEEDED (QHS)
     Route: 048
  12. DICYCLOMINE [Concomitant]
     Active Substance: DICYCLOMINE HYDROCHLORIDE
     Dosage: 10 MG, TWICE A DAY (10 MG 1 AM +1 PM)
  13. FAMOTIDINE. [Concomitant]
     Active Substance: FAMOTIDINE
     Indication: ACIDOSIS
     Dosage: 20 MG, AS NEEDED (1 OR 2)
  14. VITAMIN D3 [Concomitant]
     Active Substance: CHOLECALCIFEROL
     Dosage: 2000 IU, UNK
     Route: 048
  15. PLENDIL [Concomitant]
     Active Substance: FELODIPINE
     Dosage: 5 MG, 1X/DAY
     Route: 048
  16. CORRECTOL NOS [Concomitant]
     Active Substance: BISACODYL OR DOCUSATE SODIUM
     Indication: LAXATIVE SUPPORTIVE CARE
     Dosage: 5 MG, 1X/DAY (PM)
  17. XANAX [Concomitant]
     Active Substance: ALPRAZOLAM
     Indication: NERVOUS SYSTEM DISORDER
     Dosage: 1 MG, AS NEEDED (THREE (3) TIMES A DAY)
  18. ECOTRIN [Concomitant]
     Active Substance: ASPIRIN
     Dosage: 81 MG, DAILY
     Route: 048
  19. PRILOSEC [Concomitant]
     Active Substance: OMEPRAZOLE MAGNESIUM
     Dosage: 20 MG, 2X/DAY
     Route: 048
  20. VITAMIN D3 [Concomitant]
     Active Substance: CHOLECALCIFEROL
     Dosage: 2000 IU, 1X/DAY
  21. AROMASIN [Suspect]
     Active Substance: EXEMESTANE
     Indication: BREAST CANCER FEMALE
     Dosage: 25 MG, 1X/DAY (1 AM)
     Route: 048
     Dates: start: 201212
  22. PRUNE [Concomitant]
     Active Substance: PRUNE
     Indication: LAXATIVE SUPPORTIVE CARE
     Dosage: 16 OZ EVERY AM AS NEEDED
  23. STOOL SOFTENER (DOCUSATE CALCIUM) [Concomitant]
     Active Substance: DOCUSATE CALCIUM
     Indication: LAXATIVE SUPPORTIVE CARE
     Dosage: 2 DF, UNK
  24. LOVASTATIN. [Concomitant]
     Active Substance: LOVASTATIN
     Indication: BLOOD CHOLESTEROL ABNORMAL
     Dosage: 20 MG, 1X/DAY (PM)
  25. CHLOR [Concomitant]
     Indication: HYPERSENSITIVITY
     Dosage: 4 MG, EVERY 4 HOURS
  26. BISACODYL. [Concomitant]
     Active Substance: BISACODYL
     Dosage: 5 MG, ALTERNATE DAY
     Route: 048
  27. MEVACOR [Concomitant]
     Active Substance: LOVASTATIN
     Dosage: 1 MG, DAILY

REACTIONS (10)
  - Hypertension [Not Recovered/Not Resolved]
  - Breast tenderness [Not Recovered/Not Resolved]
  - Osteopenia [Unknown]
  - Head injury [Not Recovered/Not Resolved]
  - Facial paralysis [Recovered/Resolved]
  - Fall [Not Recovered/Not Resolved]
  - Eye pain [Unknown]
  - Facial pain [Not Recovered/Not Resolved]
  - Loss of consciousness [Not Recovered/Not Resolved]
  - Headache [Unknown]
